FAERS Safety Report 13439175 (Version 1)
Quarter: 2017Q2

REPORT INFORMATION
  Report Type: Spontaneous
  Country: US (occurrence: US)
  Receive Date: 20170413
  Receipt Date: 20170413
  Transmission Date: 20170830
  Serious: No
  Sender: FDA-Public Use
  Company Number: US-ROCHE-1031946

PATIENT
  Age: 5 Year
  Sex: Male

DRUGS (1)
  1. ROCEPHIN [Suspect]
     Active Substance: CEFTRIAXONE SODIUM
     Indication: PNEUMONIA
     Route: 030
     Dates: start: 20120118

REACTIONS (2)
  - Gait disturbance [Unknown]
  - Dysuria [Not Recovered/Not Resolved]
